FAERS Safety Report 8002668-X (Version None)
Quarter: 2011Q4

REPORT INFORMATION
  Report Type: 
  Country: None (occurrence: None)
  Receive Date: 20111220
  Receipt Date: 20111207
  Transmission Date: 20120403
  Serious: Yes (Disabling)
  Sender: FDA-Public Use
  Company Number: VISP-NO-1106S-0226

PATIENT
  Age: 57 Year
  Sex: Female
  Weight: 57 kg

DRUGS (1)
  1. VISIPAQUE [Suspect]
     Indication: PRODUCT USED FOR UNKNOWN INDICATION
     Dosage: 145 ML, SINGLE DOSE, INTRAVENOUS
     Route: 042
     Dates: start: 20101207, end: 20101207

REACTIONS (2)
  - HYPERAESTHESIA [None]
  - DRUG HYPERSENSITIVITY [None]
